FAERS Safety Report 9676448 (Version 2)
Quarter: 2013Q4

REPORT INFORMATION
  Report Type: Report from Study
  Country: US (occurrence: US)
  Receive Date: 20131107
  Receipt Date: 20131107
  Transmission Date: 20140711
  Serious: Yes (Hospitalization, Other)
  Sender: FDA-Public Use
  Company Number: US-ROCHE-1284253

PATIENT
  Age: 54 Year
  Sex: Female
  Weight: 49.8 kg

DRUGS (4)
  1. VISMODEGIB [Suspect]
     Indication: PANCREATIC CARCINOMA
     Dosage: PERMANENTLY DISCONTINUED
     Route: 048
     Dates: start: 20130830, end: 20130927
  2. SIROLIMUS [Suspect]
     Indication: PANCREATIC CARCINOMA
     Dosage: PERMANENTLY DISCONTINUED
     Route: 048
     Dates: start: 20130830, end: 20130927
  3. COLACE [Suspect]
     Indication: PRODUCT USED FOR UNKNOWN INDICATION
     Route: 065
  4. OXYCODONE [Suspect]
     Indication: PRODUCT USED FOR UNKNOWN INDICATION
     Route: 065

REACTIONS (8)
  - Pneumonia [Unknown]
  - Thrombocytopenia [Unknown]
  - Constipation [Recovering/Resolving]
  - Abdominal pain [Recovering/Resolving]
  - Dyspnoea [Unknown]
  - Pulmonary embolism [Recovered/Resolved]
  - White blood cell count increased [Unknown]
  - Hypoalbuminaemia [Unknown]
